FAERS Safety Report 7030362 (Version 2)
Quarter: 2016Q1

REPORT INFORMATION
  Report Type: Spontaneous
  Country: US (occurrence: US)
  Receive Date: 20090623
  Receipt Date: 20160110
  Transmission Date: 20160526
  Serious: No
  Sender: FDA-Public Use
  Company Number: US-ASTRAZENECA-2008UW06300

PATIENT
  Age: 790 Month
  Sex: Male
  Weight: 70.3 kg

DRUGS (9)
  1. NEXIUM [Suspect]
     Active Substance: ESOMEPRAZOLE MAGNESIUM
     Indication: GASTROOESOPHAGEAL REFLUX DISEASE
     Route: 048
  2. NEXIUM [Suspect]
     Active Substance: ESOMEPRAZOLE MAGNESIUM
     Indication: GASTROOESOPHAGEAL REFLUX DISEASE
     Route: 048
  3. AVONEX [Concomitant]
     Active Substance: INTERFERON BETA-1A
  4. NEXIUM [Suspect]
     Active Substance: ESOMEPRAZOLE MAGNESIUM
     Indication: GRANULOMA
     Route: 048
  5. NEXIUM [Suspect]
     Active Substance: ESOMEPRAZOLE MAGNESIUM
     Indication: GASTROOESOPHAGEAL REFLUX DISEASE
     Route: 048
     Dates: start: 201512
  6. PULMICORT RESPULES [Suspect]
     Active Substance: BUDESONIDE
     Indication: PNEUMONIA
     Route: 055
  7. NEXIUM [Suspect]
     Active Substance: ESOMEPRAZOLE MAGNESIUM
     Indication: GRANULOMA
     Route: 048
  8. UNITHYROID [Concomitant]
     Indication: THYROID DISORDER
     Route: 048
  9. CYTOMEL [Concomitant]
     Active Substance: LIOTHYRONINE SODIUM
     Indication: THYROID DISORDER
     Route: 048

REACTIONS (7)
  - Dysgeusia [Not Recovered/Not Resolved]
  - Off label use [Unknown]
  - Glossodynia [Unknown]
  - Speech disorder [Unknown]
  - Nasal odour [Not Recovered/Not Resolved]
  - Dry mouth [Unknown]
  - Product use issue [Unknown]

NARRATIVE: CASE EVENT DATE: 201512
